FAERS Safety Report 10980091 (Version 2)
Quarter: 2015Q2

REPORT INFORMATION
  Report Type: Report from Study
  Country: GB (occurrence: GB)
  Receive Date: 20150402
  Receipt Date: 20150410
  Transmission Date: 20150821
  Serious: Yes (Hospitalization, Other)
  Sender: FDA-Public Use
  Company Number: GB-GLAXOSMITHKLINE-GB2015GSK043338

PATIENT
  Age: 56 Year
  Sex: Male

DRUGS (15)
  1. BLINDED INVESTIGATIONAL DRUG, UNSPECIFIED [Suspect]
     Active Substance: INVESTIGATIONAL PRODUCT
     Indication: BLADDER CANCER
     Dosage: UNK
     Dates: start: 20110323, end: 20110323
  2. RANITIDINE [Concomitant]
     Active Substance: RANITIDINE\RANITIDINE HYDROCHLORIDE
     Dosage: 150 MG, QD
  3. MORPHINE SULFATE/NALTREXONE HYDROCHLORIDE [Concomitant]
     Active Substance: MORPHINE SULFATE\NALTREXONE HYDROCHLORIDE
     Dosage: 60 MG, PRN
  4. NYSTATIN. [Concomitant]
     Active Substance: NYSTATIN
  5. PLACEBO [Suspect]
     Active Substance: UNSPECIFIED INGREDIENT
     Indication: BLADDER CANCER
     Dosage: UNK
     Dates: start: 20110323, end: 20110323
  6. BLINDED LAPATINIB TOSILATE [Suspect]
     Active Substance: LAPATINIB DITOSYLATE
     Indication: BLADDER CANCER
     Dosage: UNK
     Dates: start: 20110323, end: 20110323
  7. BLINDED LAPATINIB TOSILATE [Suspect]
     Active Substance: LAPATINIB DITOSYLATE
     Indication: BLADDER CANCER
     Dosage: UNK
     Dates: start: 20110323, end: 20110323
  8. DIAMORPHINE [Concomitant]
     Active Substance: DIACETYLMORPHINE
  9. ALFENTANIL [Concomitant]
     Active Substance: ALFENTANIL
     Dosage: 20 MG, UNK
     Route: 058
  10. HALOPERIDOL. [Concomitant]
     Active Substance: HALOPERIDOL
     Dosage: 3 MG, UNK
     Route: 058
  11. LEVOPROMAZINE [Concomitant]
     Active Substance: LEVOMEPROMAZINE
  12. BLINDED NO THERAPY [Suspect]
     Active Substance: UNSPECIFIED INGREDIENT
     Indication: BLADDER CANCER
     Dosage: UNK
     Dates: start: 20110323, end: 20110323
  13. PLACEBO [Suspect]
     Active Substance: UNSPECIFIED INGREDIENT
     Indication: BLADDER CANCER
     Dosage: UNK
     Dates: start: 20110323, end: 20110323
  14. PREDNISOLONE. [Concomitant]
     Active Substance: PREDNISOLONE
     Dosage: 10 MG, QD
  15. DOCUSATE SODIUM. [Concomitant]
     Active Substance: DOCUSATE SODIUM
     Dosage: 200 MG, BID

REACTIONS (3)
  - White blood cell count increased [Not Recovered/Not Resolved]
  - Pyrexia [Not Recovered/Not Resolved]
  - Sepsis [Not Recovered/Not Resolved]

NARRATIVE: CASE EVENT DATE: 20110518
